FAERS Safety Report 9618751 (Version 5)
Quarter: 2019Q4

REPORT INFORMATION
  Report Type: Report from Study
  Country: US (occurrence: US)
  Receive Date: 20131014
  Receipt Date: 20191113
  Transmission Date: 20200122
  Serious: Yes (Hospitalization, Other)
  Sender: FDA-Public Use
  Company Number: US-SA-2013SA101171

PATIENT
  Age: 54 Year
  Sex: Male
  Weight: 95.25 kg

DRUGS (12)
  1. ALGLUCOSIDASE ALFA [Suspect]
     Active Substance: ALGLUCOSIDASE ALFA
     Indication: GLYCOGEN STORAGE DISEASE TYPE II
     Dosage: 20.4 MG/KG, QOW
     Route: 042
     Dates: start: 20061026, end: 20131001
  2. LISINOPRIL. [Concomitant]
     Active Substance: LISINOPRIL
     Indication: HYPERTENSION
     Dosage: 20 MG,QD
     Route: 065
     Dates: start: 201203
  3. VITAMIN D3 [Concomitant]
     Active Substance: CHOLECALCIFEROL
     Dosage: UNK UNK,BID
     Route: 065
  4. LOVENOX [Concomitant]
     Active Substance: ENOXAPARIN SODIUM
     Dosage: 10 DF,UNK
     Route: 058
     Dates: start: 20130930, end: 20131005
  5. HYDROCHLOROTHIAZIDE. [Concomitant]
     Active Substance: HYDROCHLOROTHIAZIDE
     Indication: HYPERTENSION
     Dosage: 12.5 MG,UNK
     Route: 065
     Dates: start: 201203
  6. ALGLUCOSIDASE ALFA [Suspect]
     Active Substance: ALGLUCOSIDASE ALFA
     Dosage: 20.4 MG/KG, QOW
     Route: 042
     Dates: start: 20131003
  7. ALGLUCOSIDASE ALFA [Suspect]
     Active Substance: ALGLUCOSIDASE ALFA
     Dosage: 1950 UNK Q2
     Route: 042
  8. MILK OF MAGNESIA [Concomitant]
     Active Substance: MAGNESIUM HYDROXIDE
     Dosage: UNK UNK, UNK
     Route: 065
     Dates: start: 20130930, end: 20131005
  9. LISINOPRIL. [Concomitant]
     Active Substance: LISINOPRIL
     Dosage: 10 MG,QD
     Dates: start: 20130930, end: 20131005
  10. COENZYME Q10 [Concomitant]
     Active Substance: UBIDECARENONE
     Dosage: 300 MG,QD
     Route: 065
  11. GLUCOSE [Concomitant]
     Active Substance: DEXTROSE
     Dosage: UNK UNK, UNK
     Route: 065
     Dates: start: 20130930, end: 20131005
  12. FAMOTIDINE. [Concomitant]
     Active Substance: FAMOTIDINE
     Dosage: 20 MG,QD
     Route: 065
     Dates: start: 20130930, end: 20131005

REACTIONS (13)
  - Dysphagia [Unknown]
  - Urine output decreased [Not Recovered/Not Resolved]
  - Eyelid ptosis [Unknown]
  - Pulmonary embolism [Recovered/Resolved]
  - Pyrexia [Not Recovered/Not Resolved]
  - Winged scapula [Unknown]
  - Tongue movement disturbance [Unknown]
  - Deep vein thrombosis [Recovered/Resolved]
  - Progressive bulbar palsy [Unknown]
  - Dry mouth [Unknown]
  - Bronchitis [Recovered/Resolved]
  - Dehydration [Not Recovered/Not Resolved]
  - Eye disorder [Unknown]

NARRATIVE: CASE EVENT DATE: 20130929
